FAERS Safety Report 16095512 (Version 2)
Quarter: 2019Q2

REPORT INFORMATION
  Report Type: Spontaneous
  Country: US (occurrence: US)
  Receive Date: 20190320
  Receipt Date: 20190425
  Transmission Date: 20190711
  Serious: No
  Sender: FDA-Public Use
  Company Number: US-PFIZER INC-2019122807

PATIENT
  Age: 59 Year

DRUGS (1)
  1. VIAGRA [Suspect]
     Active Substance: SILDENAFIL CITRATE
     Indication: SEXUAL DYSFUNCTION
     Dosage: 100 MG, AS NEEDED (1-3 AS NEEDED PRIOR TO SEXUAL INTERCOURSE)

REACTIONS (2)
  - Hypertension [Unknown]
  - Prescribed overdose [Unknown]
